FAERS Safety Report 7704620-8 (Version None)
Quarter: 2011Q3

REPORT INFORMATION
  Report Type: 
  Country: None (occurrence: None)
  Receive Date: 20110823
  Receipt Date: 20110815
  Transmission Date: 20111222
  Serious: Yes (Hospitalization)
  Sender: FDA-Public Use
  Company Number: US-GLAXOSMITHKLINE-A0941764A

PATIENT
  Sex: Male

DRUGS (4)
  1. VOTRIENT [Suspect]
     Dosage: 200MG PER DAY
     Route: 065
     Dates: start: 20110717
  2. DIURETIC [Suspect]
     Route: 065
  3. POTASSIUM CHLORIDE [Suspect]
     Route: 065
  4. BLOOD PRESSURE MEDICATION [Suspect]
     Route: 065

REACTIONS (4)
  - FATIGUE [None]
  - BLOOD POTASSIUM INCREASED [None]
  - BLOOD POTASSIUM DECREASED [None]
  - MEDICATION ERROR [None]
